FAERS Safety Report 15626524 (Version 1)
Quarter: 2018Q4

REPORT INFORMATION
  Report Type: Spontaneous
  Country: US (occurrence: US)
  Receive Date: 20181116
  Receipt Date: 20181116
  Transmission Date: 20190205
  Serious: Yes (Death, Congenital Anomaly, Other)
  Sender: FDA-Public Use
  Company Number: US-VALIDUS PHARMACEUTICALS LLC-US-2018VAL000967

PATIENT
  Sex: Female

DRUGS (10)
  1. METOPROLOL TARTRATE. [Suspect]
     Active Substance: METOPROLOL TARTRATE
     Indication: HYPERTENSION
     Dosage: DOSE AS USED
     Route: 064
  2. LASIX [Suspect]
     Active Substance: FUROSEMIDE
     Indication: HYPERTENSION
     Dosage: DOSE AS USED
     Route: 064
  3. PREDNISONE. [Suspect]
     Active Substance: PREDNISONE
     Indication: IMMUNOSUPPRESSANT DRUG THERAPY
  4. MYCOPHENOLATE MOFETIL. [Suspect]
     Active Substance: MYCOPHENOLATE MOFETIL
     Indication: IMMUNOSUPPRESSANT DRUG THERAPY
     Dosage: 500 MG, QD
     Route: 064
  5. NORVASC [Suspect]
     Active Substance: AMLODIPINE BESYLATE
     Indication: HYPERTENSION
     Dosage: DOSE AS USED
     Route: 064
  6. TACROLIMUS. [Suspect]
     Active Substance: TACROLIMUS
     Indication: RENAL TRANSPLANT
     Dosage: DOSE AS USED (3 MG AM; 2 MG PM)
     Route: 064
  7. EPOGEN [Suspect]
     Active Substance: ERYTHROPOIETIN
     Indication: PRODUCT USED FOR UNKNOWN INDICATION
     Dosage: DOSE AS USED
     Route: 064
  8. PREDNISONE. [Suspect]
     Active Substance: PREDNISONE
     Indication: PROPHYLAXIS
     Dosage: 5 MG, QD
     Route: 064
  9. TACROLIMUS. [Suspect]
     Active Substance: TACROLIMUS
     Indication: IMMUNOSUPPRESSANT DRUG THERAPY
  10. ACICLOVIR [Concomitant]
     Active Substance: ACYCLOVIR
     Indication: PRODUCT USED FOR UNKNOWN INDICATION
     Dosage: UNK

REACTIONS (18)
  - Atrial septal defect [Fatal]
  - Congenital anomaly [Fatal]
  - Cyanosis [Fatal]
  - Oesophageal atresia [Fatal]
  - Microtia [Fatal]
  - Heart disease congenital [Fatal]
  - Fryns syndrome [Fatal]
  - Coarctation of the aorta [Fatal]
  - Multiple congenital abnormalities [Fatal]
  - Dysmorphism [Fatal]
  - Cleft palate [Fatal]
  - Craniofacial deformity [Fatal]
  - Pulmonary hypoplasia [Fatal]
  - Abdominal hernia [Fatal]
  - Congenital diaphragmatic hernia [Fatal]
  - Exposure during pregnancy [Fatal]
  - Congenital nail disorder [Fatal]
  - Tracheo-oesophageal fistula [Fatal]

NARRATIVE: CASE EVENT DATE: 2005
